FAERS Safety Report 7310742-6 (Version None)
Quarter: 2011Q1

REPORT INFORMATION
  Report Type: 
  Country: None (occurrence: None)
  Receive Date: 20110224
  Receipt Date: 20110215
  Transmission Date: 20110831
  Serious: Yes (Other)
  Sender: FDA-Public Use
  Company Number: PHHY2011US12397

PATIENT
  Sex: Female

DRUGS (1)
  1. RECLAST [Suspect]
     Dosage: 1 X YEAR

REACTIONS (6)
  - BONE PAIN [None]
  - HYPERTENSION [None]
  - TOOTHACHE [None]
  - MALAISE [None]
  - PNEUMONIA [None]
  - PAIN IN JAW [None]
